FAERS Safety Report 7583762-4 (Version None)
Quarter: 2011Q2

REPORT INFORMATION
  Report Type: 
  Country: None (occurrence: None)
  Receive Date: 20110630
  Receipt Date: 20110622
  Transmission Date: 20111010
  Serious: Yes (Hospitalization)
  Sender: FDA-Public Use
  Company Number: AR-ROCHE-785465

PATIENT
  Sex: Male
  Weight: 167 kg

DRUGS (10)
  1. TOCILIZUMAB [Suspect]
     Indication: RHEUMATOID ARTHRITIS
     Dosage: FREQUENCY Q4S, LAST DOSE PRIOR TO SAE ON 02 JUNE 2010.  TOTAL MONTHLY DOSE: 656 MG.
     Route: 042
     Dates: start: 20061221
  2. PREDNISONE [Concomitant]
     Route: 048
     Dates: start: 20100525
  3. PREDNISONE [Concomitant]
     Route: 048
     Dates: start: 20080212, end: 20100522
  4. DICLOFENAC SODIUM [Concomitant]
     Route: 048
     Dates: start: 20080214, end: 20100522
  5. BLINDED TOCILIZUMAB [Suspect]
     Indication: RHEUMATOID ARTHRITIS
     Dosage: PREVIOUSLY ENROLLED IN WA18063
     Route: 042
  6. DICLOFENAC SODIUM [Concomitant]
     Route: 048
     Dates: start: 20100525
  7. OMEPRAZOLE [Concomitant]
     Dates: start: 20080314, end: 20080522
  8. ARTERIOSAN PLUS [Concomitant]
     Dosage: 1 TABLET
     Dates: start: 20080212
  9. ATORVASTATIN [Concomitant]
     Dates: start: 20080806
  10. METHOTREXATE [Concomitant]
     Dosage: FREQUENCY: AS MUCH AS NEEDED (QS)
     Route: 048

REACTIONS (1)
  - CHEST PAIN [None]
